FAERS Safety Report 13350337 (Version 3)
Quarter: 2017Q2

REPORT INFORMATION
  Report Type: Spontaneous
  Country: JP (occurrence: JP)
  Receive Date: 20170320
  Receipt Date: 20170612
  Transmission Date: 20170830
  Serious: Yes (Other)
  Sender: FDA-Public Use
  Company Number: JP-JNJFOC-20170317843

PATIENT
  Age: 79 Year
  Sex: Female
  Weight: 51 kg

DRUGS (1)
  1. SIMPONI [Suspect]
     Active Substance: GOLIMUMAB
     Indication: RHEUMATOID ARTHRITIS
     Route: 058
     Dates: start: 20151005

REACTIONS (1)
  - Atypical mycobacterial infection [Recovering/Resolving]

NARRATIVE: CASE EVENT DATE: 20160525
